FAERS Safety Report 6819709-5 (Version None)
Quarter: 2010Q3

REPORT INFORMATION
  Report Type: 
  Country: None (occurrence: None)
  Receive Date: 20100707
  Receipt Date: 20100601
  Transmission Date: 20110219
  Serious: Yes (Other)
  Sender: FDA-Public Use
  Company Number: US-BIOGENIDEC-2010BI016969

PATIENT
  Age: 48 Year
  Sex: Male

DRUGS (8)
  1. TYSABRI [Suspect]
     Indication: MULTIPLE SCLEROSIS
     Route: 042
     Dates: start: 20070727
  2. AMPYRA [Concomitant]
     Indication: GAIT DISTURBANCE
     Dates: start: 20090901
  3. DOXEPIN HCL [Concomitant]
  4. LEXAPRO [Concomitant]
  5. BUPROPION HCL [Concomitant]
     Indication: ANXIETY
  6. LUNESTA [Concomitant]
     Indication: SLEEP DISORDER
  7. AMANTADINE HCL [Concomitant]
  8. ANDROGEL [Concomitant]

REACTIONS (1)
  - CONVULSION [None]
